FAERS Safety Report 7439301-1 (Version None)
Quarter: 2011Q2

REPORT INFORMATION
  Report Type: 
  Country: None (occurrence: None)
  Receive Date: 20110427
  Receipt Date: 20110425
  Transmission Date: 20111010
  Serious: No
  Sender: FDA-Public Use
  Company Number: US-PFIZER INC-2007073324

PATIENT
  Sex: Male
  Weight: 81.633 kg

DRUGS (4)
  1. CHANTIX [Suspect]
     Indication: SMOKING CESSATION THERAPY
     Dosage: 0.5 MG, 1X/DAY
     Route: 048
     Dates: start: 20070816
  2. ACETYLSALICYLIC ACID SRT [Concomitant]
     Dosage: UNK, DAILY
  3. DICLOFENAC [Concomitant]
     Indication: ARTHRITIS
     Dosage: UNK
  4. ALLOPURINOL [Concomitant]
     Indication: NEPHROLITHIASIS
     Dosage: UNK, DAILY

REACTIONS (12)
  - DRUG WITHDRAWAL SYNDROME [None]
  - DRUG DOSE OMISSION [None]
  - ABNORMAL DREAMS [None]
  - NAUSEA [None]
  - NERVOUSNESS [None]
  - INSOMNIA [None]
  - STRESS [None]
  - DIZZINESS [None]
  - IRRITABILITY [None]
  - TENSION [None]
  - SCREAMING [None]
  - EUPHORIC MOOD [None]
